FAERS Safety Report 11709635 (Version 2)
Quarter: 2015Q4

REPORT INFORMATION
  Report Type: Spontaneous
  Country: US (occurrence: US)
  Receive Date: 20151104
  Receipt Date: 20151110
  Transmission Date: 20160304
  Serious: Yes (Other)
  Sender: FDA-Public Use
  Company Number: US-ELI_LILLY_AND_COMPANY-US201106008044

PATIENT
  Age: 88 Year
  Sex: Female

DRUGS (2)
  1. FORTEO [Suspect]
     Active Substance: TERIPARATIDE
     Dosage: 20 UG, QD
     Dates: end: 20110820
  2. FORTEO [Suspect]
     Active Substance: TERIPARATIDE
     Indication: OSTEOPOROSIS
     Dosage: UNK, QD
     Dates: start: 20110608

REACTIONS (11)
  - Hypertension [Unknown]
  - Asthenia [Unknown]
  - Dizziness [Recovered/Resolved]
  - Presyncope [Unknown]
  - Dehydration [Unknown]
  - Fatigue [Unknown]
  - Blood pressure decreased [Recovering/Resolving]
  - Eye movement disorder [Unknown]
  - Vertigo [Unknown]
  - Syncope [Unknown]
  - Eating disorder [Unknown]

NARRATIVE: CASE EVENT DATE: 201108
